FAERS Safety Report 6874554-X (Version None)
Quarter: 2010Q3

REPORT INFORMATION
  Report Type: 
  Country: None (occurrence: None)
  Receive Date: 20100722
  Receipt Date: 20100707
  Transmission Date: 20110219
  Serious: Yes (Life-Threatening)
  Sender: FDA-Public Use
  Company Number: GB-DEXPHARM-20100994

PATIENT
  Age: 59 Year
  Sex: Female

DRUGS (10)
  1. LOSEC ACTIVE SUBSTANCES: OMEPRAZOLE [Suspect]
     Indication: HIATUS HERNIA
     Dosage: 20 MG MILLIGRAM(S)
     Route: 048
     Dates: end: 20100222
  2. ATENOLOL [Concomitant]
  3. CALCEOS [Concomitant]
  4. CARBIMAZOLE [Concomitant]
  5. DOMPERIDONE [Concomitant]
  6. FEXOFENADINE [Concomitant]
  7. FLUOXETINE [Concomitant]
  8. LOPERAMIDE HYDROCHLORIDE [Concomitant]
  9. ONE-ALPHA [Concomitant]
  10. SODIUM ALGINATE [Concomitant]

REACTIONS (1)
  - HYPOMAGNESAEMIA [None]
